FAERS Safety Report 5058352-8 (Version None)
Quarter: 2006Q2

REPORT INFORMATION
  Report Type: 
  Country: None (occurrence: None)
  Receive Date: 20060626
  Receipt Date: 20060418
  Transmission Date: 20061013
  Serious: Yes (Other)
  Sender: FDA-Public Use
  Company Number: US-JNJFOC20060304346

PATIENT
  Age: 52 Year
  Sex: Female
  Weight: 65.7716 kg

DRUGS (3)
  1. ULTRAM SR [Suspect]
     Indication: BACK PAIN
     Dosage: 100 MG, 1 IN 1 DAY, ORAL
     Route: 048
     Dates: start: 20060309, end: 20060309
  2. LIDODERM [Concomitant]
  3. LEVOTHYROID (LEVOTHYROXINE) [Concomitant]

REACTIONS (1)
  - ANAPHYLACTIC REACTION [None]
